FAERS Safety Report 7974578-5 (Version None)
Quarter: 2011Q4

REPORT INFORMATION
  Report Type: 
  Country: None (occurrence: None)
  Receive Date: 20111213
  Receipt Date: 20111206
  Transmission Date: 20120403
  Serious: Yes (Death)
  Sender: FDA-Public Use
  Company Number: IT-ROXANE LABORATORIES, INC.-2011-RO-01786RO

PATIENT
  Age: 50 Year
  Sex: Male

DRUGS (3)
  1. PHENOBARBITAL TAB [Suspect]
     Indication: EPILEPSY
     Dosage: 100 MG
  2. TEMOZOLOMIDE [Suspect]
     Indication: GLIOBLASTOMA MULTIFORME
  3. LEVETIRACETAM [Suspect]
     Indication: EPILEPSY
     Dosage: 2500 MG

REACTIONS (1)
  - NEOPLASM PROGRESSION [None]
